FAERS Safety Report 11095615 (Version 3)
Quarter: 2015Q2

REPORT INFORMATION
  Report Type: Report from Study
  Country: AU (occurrence: AU)
  Receive Date: 20150506
  Receipt Date: 20150522
  Transmission Date: 20150821
  Serious: Yes (Death, Other)
  Sender: FDA-Public Use
  Company Number: PHHY2014AU118716

PATIENT
  Age: 29 Year
  Sex: Female

DRUGS (2)
  1. LDK378 [Suspect]
     Active Substance: CERITINIB
     Indication: ADENOCARCINOMA
     Dosage: 600 MG, QD (DAILY)
     Route: 048
     Dates: end: 201501
  2. LDK378 [Suspect]
     Active Substance: CERITINIB
     Indication: NON-SMALL CELL LUNG CANCER
     Dosage: 750 MG, QD (DAILY)
     Route: 048
     Dates: start: 20140814, end: 20140911

REACTIONS (9)
  - Lymphoedema [Unknown]
  - Dyspnoea [Fatal]
  - Alanine aminotransferase increased [Unknown]
  - Chest pain [Fatal]
  - Non-small cell lung cancer [Fatal]
  - Nausea [Unknown]
  - Vomiting [Unknown]
  - Malignant neoplasm progression [Fatal]
  - Sinus tachycardia [Unknown]

NARRATIVE: CASE EVENT DATE: 20140910
